FAERS Safety Report 6252160-8 (Version None)
Quarter: 2009Q2

REPORT INFORMATION
  Report Type: 
  Country: None (occurrence: None)
  Receive Date: 20090630
  Receipt Date: 20050406
  Transmission Date: 20091009
  Serious: Yes (Hospitalization)
  Sender: FDA-Public Use
  Company Number: US-ROCHE-639693

PATIENT
  Sex: Male

DRUGS (30)
  1. ENFUVIRTIDE [Suspect]
     Route: 065
     Dates: start: 20030428, end: 20060716
  2. VALCYTE [Concomitant]
     Dates: start: 20060724, end: 20060801
  3. VALCYTE [Concomitant]
     Dates: end: 20061009
  4. LEXIVA [Concomitant]
     Dates: start: 20031126, end: 20051012
  5. EPZICOM [Concomitant]
     Dates: start: 20050101, end: 20051012
  6. KALETRA [Concomitant]
     Dates: end: 20050215
  7. KALETRA [Concomitant]
     Dates: start: 20050215, end: 20051012
  8. KALETRA [Concomitant]
     Dates: start: 20051012, end: 20061009
  9. INVIRASE [Concomitant]
     Dates: start: 20051012, end: 20061009
  10. INVIRASE [Concomitant]
     Dates: end: 20030624
  11. EPIVIR [Concomitant]
     Dates: start: 20051222, end: 20061009
  12. NORVIR [Concomitant]
     Dates: end: 20061009
  13. VIRAMUNE [Concomitant]
     Dates: end: 20030624
  14. ZIAGEN [Concomitant]
     Dates: end: 20051012
  15. ACYCLOVIR [Concomitant]
     Dates: start: 20020719, end: 20040101
  16. SPORANOX [Concomitant]
     Dates: start: 20040524, end: 20040926
  17. CEFTRIAXONE [Concomitant]
     Dates: start: 20040711, end: 20040715
  18. CEFTRIAXONE [Concomitant]
     Dates: start: 20051222, end: 20060105
  19. VANCOMYCIN [Concomitant]
     Dates: start: 20040711, end: 20040715
  20. ZITHROMAX [Concomitant]
     Dates: start: 20040711, end: 20040715
  21. FLUMADINE [Concomitant]
     Dates: start: 20041211, end: 20050401
  22. LEVAQUIN [Concomitant]
     Dates: start: 20050117, end: 20050127
  23. LEVAQUIN [Concomitant]
     Dates: start: 20050406, end: 20050417
  24. ZOSYN [Concomitant]
     Dates: start: 20050117, end: 20050127
  25. ZOSYN [Concomitant]
     Dates: start: 20050406, end: 20050413
  26. CIPRO [Concomitant]
     Dates: start: 20051222
  27. MEROPENEM [Concomitant]
     Dates: start: 20060716, end: 20060801
  28. ZOSYN [Concomitant]
     Route: 042
     Dates: start: 20060716, end: 20060724
  29. DIFLUCAN [Concomitant]
     Dates: end: 20040101
  30. SEPTRA DS [Concomitant]
     Dates: end: 20051222

REACTIONS (3)
  - HIV INFECTION [None]
  - SHOCK [None]
  - UROSEPSIS [None]
